FAERS Safety Report 6642183-9 (Version None)
Quarter: 2010Q1

REPORT INFORMATION
  Report Type: 
  Country: None (occurrence: None)
  Receive Date: 20100319
  Receipt Date: 20100309
  Transmission Date: 20100710
  Serious: Yes (Death)
  Sender: FDA-Public Use
  Company Number: US-PFIZER INC-2010030699

PATIENT
  Sex: Female

DRUGS (7)
  1. LIPITOR [Suspect]
     Dosage: 20 MG, UNK
     Route: 048
  2. COZAAR [Concomitant]
     Dosage: UNK MG, UNK
     Route: 048
  3. NEXIUM [Concomitant]
     Dosage: 40 MG, 1X/DAY
     Route: 048
  4. AMLODIPINE/VALSARTAN [Concomitant]
     Dosage: 5/320
     Route: 048
  5. ACTONEL [Concomitant]
     Dosage: 35 MG, WEEKLY
     Route: 048
  6. PLAVIX [Concomitant]
     Dosage: 75 MG, 1X/DAY
     Route: 048
  7. ULTRAM [Concomitant]
     Dosage: UNK MG, UNK
     Route: 048

REACTIONS (1)
  - DEATH [None]
